FAERS Safety Report 15271331 (Version 2)
Quarter: 2018Q4

REPORT INFORMATION
  Report Type: Spontaneous
  Country: GB (occurrence: GB)
  Receive Date: 20180813
  Receipt Date: 20181102
  Transmission Date: 20190204
  Serious: Yes (Hospitalization, Disabling, Other)
  Sender: FDA-Public Use
  Company Number: GB-TORRENT-00017024

PATIENT
  Age: 31 Year
  Sex: Male
  Weight: 78 kg

DRUGS (1)
  1. ESCITALOPRAM [Suspect]
     Active Substance: ESCITALOPRAM OXALATE
     Indication: PANIC ATTACK
     Dosage: UNKNOWN
     Route: 048
     Dates: start: 2010

REACTIONS (2)
  - Pollakiuria [Recovering/Resolving]
  - Micturition urgency [Recovering/Resolving]
